FAERS Safety Report 18654316 (Version 2)
Quarter: 2021Q1

REPORT INFORMATION
  Report Type: Spontaneous
  Country: US (occurrence: US)
  Receive Date: 20201223
  Receipt Date: 20210302
  Transmission Date: 20210419
  Serious: Yes (Hospitalization)
  Sender: FDA-Public Use
  Company Number: US-ELI_LILLY_AND_COMPANY-US202012010290

PATIENT
  Age: 92 Year
  Sex: Male
  Weight: 86.2 kg

DRUGS (7)
  1. MUCINEX [Concomitant]
     Active Substance: GUAIFENESIN
     Indication: LOWER RESPIRATORY TRACT CONGESTION
  2. OXYGEN. [Concomitant]
     Active Substance: OXYGEN
     Dosage: UNK, PRN
  3. MUCINEX [Concomitant]
     Active Substance: GUAIFENESIN
     Indication: COUGH
     Dosage: UNK, UNKNOWN
  4. BAMLANIVIMAB 700MG [Suspect]
     Active Substance: BAMLANIVIMAB
     Indication: COVID-19
     Dosage: 700 MG, SINGLE
     Route: 041
     Dates: start: 20201203, end: 20201203
  5. OXYGEN. [Concomitant]
     Active Substance: OXYGEN
     Indication: PRODUCT USED FOR UNKNOWN INDICATION
     Dosage: 3 L, UNKNOWN
     Route: 045
  6. DEXAMETHASONE. [Concomitant]
     Active Substance: DEXAMETHASONE
     Indication: PRODUCT USED FOR UNKNOWN INDICATION
     Dosage: UNK, DAILY
  7. COMBIVENT [Concomitant]
     Active Substance: ALBUTEROL SULFATE\IPRATROPIUM BROMIDE
     Indication: PRODUCT USED FOR UNKNOWN INDICATION
     Dosage: UNK, QID

REACTIONS (1)
  - Staphylococcus test positive [Recovered/Resolved]

NARRATIVE: CASE EVENT DATE: 20201205
